FAERS Safety Report 5680054-5 (Version None)
Quarter: 2008Q1

REPORT INFORMATION
  Report Type: 
  Country: None (occurrence: None)
  Receive Date: 20080325
  Receipt Date: 20080325
  Transmission Date: 20080703
  Serious: Yes (Life-Threatening)
  Sender: FDA-Public Use
  Company Number: None

PATIENT
  Age: 37 Year
  Sex: Female
  Weight: 68.0396 kg

DRUGS (1)
  1. AMBIEN [Suspect]
     Indication: INSOMNIA
     Dosage: 6.5MG ONCE AT NIGHT PO; ONCE DAILY
     Route: 048
     Dates: start: 20070401, end: 20070830

REACTIONS (6)
  - ABNORMAL SLEEP-RELATED EVENT [None]
  - AMNESIA [None]
  - INJURY [None]
  - PHARMACEUTICAL PRODUCT COMPLAINT [None]
  - ROAD TRAFFIC ACCIDENT [None]
  - SOMNAMBULISM [None]
